FAERS Safety Report 8889855 (Version 2)
Quarter: 2013Q4

REPORT INFORMATION
  Report Type: Spontaneous
  Country: CA (occurrence: None)
  Receive Date: 20121031
  Receipt Date: 20131211
  Transmission Date: 20140711
  Serious: Yes (Disabling)
  Sender: FDA-Public Use
  Company Number: 2012AP003462

PATIENT
  Age: 57 Year
  Sex: Female

DRUGS (4)
  1. MIRTAZAPINE [Suspect]
     Indication: DEPRESSION
     Route: 048
     Dates: start: 20120528, end: 20121010
  2. CLONAZEPAM (CLONAZEPAM) [Concomitant]
  3. OMEPRAZOLE (OMEPRAZOLE) [Concomitant]
  4. ROSUVASTATIN (ROSUVASTATIN) [Concomitant]

REACTIONS (7)
  - Headache [None]
  - Malaise [None]
  - Drug ineffective [None]
  - Crying [None]
  - Insomnia [None]
  - Product substitution issue [None]
  - Product quality issue [None]
